FAERS Safety Report 14479491 (Version 2)
Quarter: 2018Q1

REPORT INFORMATION
  Report Type: Report from Study
  Country: AT (occurrence: AT)
  Receive Date: 20180202
  Receipt Date: 20180305
  Transmission Date: 20180509
  Serious: Yes (Other)
  Sender: FDA-Public Use
  Company Number: AT-ALLERGAN-1805358US

PATIENT
  Age: 38 Year
  Sex: Female

DRUGS (15)
  1. TRITTICO [Suspect]
     Active Substance: TRAZODONE HYDROCHLORIDE
     Dosage: 150 MG, QD
     Route: 048
     Dates: start: 20150720
  2. OLEOVIT [Concomitant]
     Dosage: 30 GTT, UNK
     Route: 065
     Dates: start: 20150709, end: 20150709
  3. INDERAL [Concomitant]
     Active Substance: PROPRANOLOL HYDROCHLORIDE
     Indication: PRODUCT USED FOR UNKNOWN INDICATION
     Dosage: 5 MG, QD
     Route: 065
     Dates: start: 20150706, end: 20150706
  4. INDERAL [Concomitant]
     Active Substance: PROPRANOLOL HYDROCHLORIDE
     Dosage: 10 MG, QD
     Route: 065
     Dates: start: 20150707, end: 20150707
  5. OLEOVIT [Concomitant]
     Dosage: 30 GTT, UNK
     Route: 065
     Dates: start: 20150703, end: 20150703
  6. CITALOPRAM HYDROBROMIDE UNK [Suspect]
     Active Substance: CITALOPRAM HYDROBROMIDE
     Indication: PRODUCT USED FOR UNKNOWN INDICATION
     Dosage: 20 MG, QD
     Route: 048
     Dates: start: 2014, end: 20150624
  7. CITALOPRAM HYDROBROMIDE UNK [Suspect]
     Active Substance: CITALOPRAM HYDROBROMIDE
     Dosage: 40 MG, QD
     Route: 048
     Dates: start: 20150625, end: 20150709
  8. OLEOVIT [Concomitant]
     Dosage: 30 GTT, UNK
     Route: 065
     Dates: start: 20150717, end: 20150717
  9. TRITTICO [Suspect]
     Active Substance: TRAZODONE HYDROCHLORIDE
     Dosage: 100 MG, QD
     Route: 048
     Dates: start: 20150710, end: 20150719
  10. OLEOVIT [Concomitant]
     Dosage: 30 GTT, UNK
     Route: 065
     Dates: start: 20150724, end: 20150724
  11. OLEOVIT [Concomitant]
     Indication: PRODUCT USED FOR UNKNOWN INDICATION
     Dosage: 30 GTT, UNK
     Route: 065
     Dates: start: 20150626, end: 20150626
  12. HOVA [Concomitant]
     Active Substance: HERBALS\HOPS\VALERIAN
     Indication: PRODUCT USED FOR UNKNOWN INDICATION
     Route: 065
     Dates: start: 20150709, end: 20150709
  13. TRITTICO [Suspect]
     Active Substance: TRAZODONE HYDROCHLORIDE
     Indication: PRODUCT USED FOR UNKNOWN INDICATION
     Dosage: 50 MG, QD
     Route: 048
     Dates: start: 2014, end: 20150709
  14. PARKEMED [Concomitant]
     Active Substance: MEFENAMIC ACID
     Indication: PRODUCT USED FOR UNKNOWN INDICATION
     Dosage: 500 MG, QD
     Route: 065
     Dates: start: 20150626, end: 20150626
  15. OLEOVIT [Concomitant]
     Dosage: 30 GTT, UNK
     Route: 065
     Dates: start: 20150731

REACTIONS (6)
  - Food craving [Recovered/Resolved]
  - Drug ineffective [Unknown]
  - Muscle strain [Unknown]
  - Restlessness [Unknown]
  - Weight increased [Unknown]
  - Food aversion [Unknown]

NARRATIVE: CASE EVENT DATE: 20150627
